FAERS Safety Report 20616228 (Version 1)
Quarter: 2022Q1

REPORT INFORMATION
  Report Type: Spontaneous
  Country: GB (occurrence: GB)
  Receive Date: 20220321
  Receipt Date: 20220321
  Transmission Date: 20220423
  Serious: Yes (Disabling, Other)
  Sender: FDA-Public Use
  Company Number: None

PATIENT
  Age: 82 Year
  Sex: Female
  Weight: 60.00 kg

DRUGS (6)
  1. AMITRIPTYLINE HYDROCHLORIDE [Suspect]
     Active Substance: AMITRIPTYLINE HYDROCHLORIDE
     Indication: Product used for unknown indication
     Route: 048
  2. CALCIUM CARBONATE\CHOLECALCIFEROL [Concomitant]
     Active Substance: CALCIUM CARBONATE\CHOLECALCIFEROL
     Dates: start: 20220307
  3. COCODAMOL [Concomitant]
     Active Substance: ACETAMINOPHEN\CODEINE PHOSPHATE
     Dosage: 1-2 FOUR TIMES A DAY WHEN REQUIRED 8MG/500MG
     Dates: start: 20220307
  4. GABAPENTIN [Concomitant]
     Active Substance: GABAPENTIN
     Dosage: 2 BD
     Dates: start: 20220309
  5. SACUBITRIL [Concomitant]
     Active Substance: SACUBITRIL
     Dates: start: 20220107
  6. VALSARTAN [Concomitant]
     Active Substance: VALSARTAN
     Dates: start: 20220107

REACTIONS (4)
  - Dyspnoea [Recovering/Resolving]
  - Fatigue [Unknown]
  - Tremor [Unknown]
  - Confusional state [Unknown]

NARRATIVE: CASE EVENT DATE: 20220302
